FAERS Safety Report 8204758-5 (Version None)
Quarter: 2012Q1

REPORT INFORMATION
  Report Type: 
  Country: None (occurrence: None)
  Receive Date: 20120313
  Receipt Date: 20120305
  Transmission Date: 20120608
  Serious: Yes (Other)
  Sender: FDA-Public Use
  Company Number: US-BAYER-2012-004552

PATIENT
  Age: 32 Year
  Sex: Female
  Weight: 101 kg

DRUGS (5)
  1. MIRENA [Suspect]
     Indication: CONTRACEPTION
     Dosage: 20 MCG/24HR, CONT
     Route: 015
     Dates: start: 20060907, end: 20110630
  2. QUAR [Concomitant]
  3. ZEGEND [Concomitant]
  4. ADVAIR DISKUS 100/50 [Concomitant]
  5. LOTENSIN [Concomitant]

REACTIONS (2)
  - PREGNANCY WITH CONTRACEPTIVE DEVICE [None]
  - ABORTION SPONTANEOUS [None]
